FAERS Safety Report 7233938-0 (Version None)
Quarter: 2011Q1

REPORT INFORMATION
  Report Type: 
  Country: None (occurrence: None)
  Receive Date: 20110113
  Receipt Date: 20110113
  Transmission Date: 20110831
  Serious: Yes (Hospitalization)
  Sender: FDA-Public Use
  Company Number: None

PATIENT
  Age: 68 Year
  Sex: Male
  Weight: 74 kg

DRUGS (2)
  1. LISINOPRIL AND HYDROCHLOROTHIAZIDE [Suspect]
     Dosage: 2 TAB EVERY DAY PO
     Route: 048
     Dates: end: 20100916
  2. SIMVASTATIN [Suspect]
     Dosage: 40 MG PO
     Route: 048
     Dates: end: 20100916

REACTIONS (1)
  - ANGIOEDEMA [None]
